FAERS Safety Report 7636350-5 (Version None)
Quarter: 2011Q3

REPORT INFORMATION
  Report Type: 
  Country: None (occurrence: None)
  Receive Date: 20110726
  Receipt Date: 20110718
  Transmission Date: 20111222
  Serious: Yes (Other)
  Sender: FDA-Public Use
  Company Number: AR-GLAXOSMITHKLINE-A0937588A

PATIENT
  Sex: Female
  Weight: 56 kg

DRUGS (1)
  1. FLUTICASONE PROPIONATE/SALMETEROL [Suspect]
     Indication: ASTHMA
     Dosage: 1PUFF PER DAY
     Route: 055
     Dates: start: 20090701

REACTIONS (3)
  - OESOPHAGEAL CANDIDIASIS [None]
  - OROPHARYNGEAL CANDIDIASIS [None]
  - OESOPHAGEAL SPASM [None]
